FAERS Safety Report 18464302 (Version 2)
Quarter: 2021Q1

REPORT INFORMATION
  Report Type: Report from Study
  Country: IT (occurrence: IT)
  Receive Date: 20201104
  Receipt Date: 20210119
  Transmission Date: 20210419
  Serious: Yes (Other)
  Sender: FDA-Public Use
  Company Number: IT-PFIZER INC-2020426424

PATIENT
  Age: 61 Year
  Sex: Female

DRUGS (11)
  1. LANSOPRAZOLE. [Concomitant]
     Active Substance: LANSOPRAZOLE
     Dosage: 30 MG
     Route: 048
  2. TAVOR (LORAZEPAM) [Concomitant]
     Active Substance: LORAZEPAM
     Dosage: 2.5 MG (1 DF)
     Route: 048
  3. DIBASE [Concomitant]
     Active Substance: CHOLECALCIFEROL
     Dosage: UNK
  4. ALPRAZOLAM. [Suspect]
     Active Substance: ALPRAZOLAM
     Indication: ANXIETY
     Dosage: 1.5 MG, SINGLE
     Route: 048
     Dates: start: 20200825, end: 20200825
  5. SERTRALINE [Concomitant]
     Active Substance: SERTRALINE HYDROCHLORIDE
     Dosage: 200 MG
     Route: 048
  6. ESKIM [Concomitant]
     Active Substance: OMEGA-3 FATTY ACIDS
     Dosage: 3000 MG (3 DF)
     Route: 048
  7. HALOPERIDOL. [Concomitant]
     Active Substance: HALOPERIDOL
     Dosage: 20 DROP
     Route: 048
  8. DEPAKIN CHRONO [VALPROATE SODIUM;VALPROIC ACID] [Concomitant]
     Active Substance: VALPROIC ACID
     Dosage: 1.5 DF
     Route: 048
  9. EUTIROX [Concomitant]
     Active Substance: LEVOTHYROXINE SODIUM
     Dosage: 150 UG (1 DF)
     Route: 048
  10. CHLORPROMAZINE. [Suspect]
     Active Substance: CHLORPROMAZINE
     Indication: ANXIETY
     Dosage: 800 MG, SINGLE
     Route: 048
     Dates: start: 20200825, end: 20200825
  11. LARGACTIL [CHLORPROMAZINE] [Concomitant]
     Active Substance: CHLORPROMAZINE
     Dosage: 100 MG (1 DF)
     Route: 048

REACTIONS (4)
  - Hypokinesia [Recovering/Resolving]
  - Bradyphrenia [Recovering/Resolving]
  - Sopor [Recovering/Resolving]
  - Drug abuse [Recovering/Resolving]

NARRATIVE: CASE EVENT DATE: 20200825
